FAERS Safety Report 5187324-8 (Version None)
Quarter: 2006Q4

REPORT INFORMATION
  Report Type: 
  Country: None (occurrence: None)
  Receive Date: 20061213
  Receipt Date: 20061127
  Transmission Date: 20070319
  Serious: Yes (Other)
  Sender: FDA-Public Use
  Company Number: TRP_0844_2006

PATIENT
  Age: 54 Year
  Sex: Female
  Weight: 68.0396 kg

DRUGS (10)
  1. RIBASPHERE [Suspect]
     Indication: HEPATITIS C
     Dosage: 200 MG 5XD PO
     Route: 048
     Dates: start: 20060428, end: 20060801
  2. PEG-INTRON [Suspect]
     Indication: HEPATITIS C
     Dosage: 120 MCG QWK SC
     Route: 058
     Dates: start: 20060428, end: 20060801
  3. RIBASPHERE [Suspect]
     Indication: HEPATITIS C
     Dosage: 200 MG 4 X DAY PO
     Route: 048
     Dates: start: 20060801
  4. PEG-INTRON [Suspect]
     Indication: HEPATITIS C
     Dosage: 80 MCG QWK SC
     Route: 058
     Dates: start: 20060801
  5. AMOXICILLIN [Concomitant]
  6. PROTONIX [Concomitant]
  7. ZOLOFT [Concomitant]
  8. ZYRTEC [Concomitant]
  9. NEUPOGEN [Concomitant]
  10. PROCRIT [Concomitant]

REACTIONS (10)
  - ASTHENIA [None]
  - DEAFNESS UNILATERAL [None]
  - DIARRHOEA [None]
  - DIZZINESS [None]
  - DYSPNOEA EXERTIONAL [None]
  - EAR CONGESTION [None]
  - EAR INFECTION [None]
  - FATIGUE [None]
  - RED BLOOD CELL COUNT DECREASED [None]
  - WHITE BLOOD CELL COUNT DECREASED [None]
